FAERS Safety Report 15023175 (Version 1)
Quarter: 2018Q2

REPORT INFORMATION
  Report Type: Spontaneous
  Country: DE (occurrence: DE)
  Receive Date: 20180618
  Receipt Date: 20180618
  Transmission Date: 20180711
  Serious: Yes (Hospitalization)
  Sender: FDA-Public Use
  Company Number: DE-TEVA-2018-DE-907599

PATIENT
  Age: 68 Year
  Sex: Male
  Weight: 93.4 kg

DRUGS (5)
  1. NATRIUMPICOSULFAT [Concomitant]
     Dosage: 7.5 MG, NEED, DROP
     Route: 048
  2. DIGITOXIN [Suspect]
     Active Substance: DIGITOXIN
     Dosage: 0.1 MG, 1-0-0-0, TABLETTEN
     Route: 048
  3. FUROSEMIDE. [Concomitant]
     Active Substance: FUROSEMIDE
     Dosage: 40 MG, 1-1-0-0, TABLETTEN
     Route: 048
  4. CALCITRIOL. [Concomitant]
     Active Substance: CALCITRIOL
     Dosage: 0.25 MG, 0-0-1-0, TABLETTEN
     Route: 048
  5. METOPROLOL. [Suspect]
     Active Substance: METOPROLOL
     Dosage: 47.4 MG, 1-0-0-0, TABLETTEN
     Route: 048

REACTIONS (5)
  - Toxicity to various agents [Unknown]
  - Syncope [Unknown]
  - Medication monitoring error [Unknown]
  - Overdose [Unknown]
  - Dizziness [Unknown]
